FAERS Safety Report 6232979-X (Version None)
Quarter: 2009Q2

REPORT INFORMATION
  Report Type: 
  Country: None (occurrence: None)
  Receive Date: 20090615
  Receipt Date: 20090615
  Transmission Date: 20091009
  Serious: No
  Sender: FDA-Public Use
  Company Number: None

PATIENT
  Sex: Female
  Weight: 68.0396 kg

DRUGS (1)
  1. PENICILLIN VK [Suspect]
     Indication: TOOTH INFECTION
     Dosage: 500 MG 4XDAY
     Dates: start: 20090421

REACTIONS (4)
  - DIZZINESS [None]
  - GINGIVAL PAIN [None]
  - NAUSEA [None]
  - ORAL DISCOMFORT [None]
